FAERS Safety Report 6581713-2 (Version None)
Quarter: 2010Q1

REPORT INFORMATION
  Report Type: 
  Country: None (occurrence: None)
  Receive Date: 20100215
  Receipt Date: 20100201
  Transmission Date: 20100710
  Serious: Yes (Other)
  Sender: FDA-Public Use
  Company Number: PHHY2010FR05935

PATIENT
  Sex: Male
  Weight: 80 kg

DRUGS (1)
  1. RASILEZ [Suspect]
     Indication: HYPERTENSION
     Dosage: 300 MG, UNK
     Dates: start: 20091127, end: 20091211

REACTIONS (1)
  - THROMBOCYTOPENIA [None]
